FAERS Safety Report 5371421-8 (Version None)
Quarter: 2007Q2

REPORT INFORMATION
  Report Type: 
  Country: None (occurrence: None)
  Receive Date: 20070622
  Receipt Date: 20070607
  Transmission Date: 20071010
  Serious: Yes (Hospitalization)
  Sender: FDA-Public Use
  Company Number: 8024543

PATIENT
  Age: 13 Year
  Sex: Male
  Weight: 47.7 kg

DRUGS (4)
  1. KEPPRA [Suspect]
     Indication: CONVULSION
     Dosage: PO
     Route: 048
     Dates: start: 20070510, end: 20070501
  2. DEPAKOTE [Concomitant]
  3. LAMICTAL [Concomitant]
  4. ANTIBIOTIC [Concomitant]

REACTIONS (8)
  - ERYTHEMA [None]
  - OPEN WOUND [None]
  - PAIN [None]
  - PRURITUS [None]
  - RASH GENERALISED [None]
  - SCAR [None]
  - SKIN EXFOLIATION [None]
  - STEVENS-JOHNSON SYNDROME [None]
